FAERS Safety Report 15269288 (Version 1)
Quarter: 2018Q3

REPORT INFORMATION
  Report Type: Spontaneous
  Country: US (occurrence: US)
  Receive Date: 20180726
  Receipt Date: 20180726
  Transmission Date: 20181010
  Serious: Yes (Life-Threatening, Hospitalization)
  Sender: FDA-Public Use
  Company Number: None

PATIENT
  Age: 62 Year
  Sex: Female
  Weight: 55.34 kg

DRUGS (1)
  1. DOXYCYCLINE HYCLATE. [Suspect]
     Active Substance: DOXYCYCLINE HYCLATE
     Indication: LYME DISEASE
     Dates: start: 201805, end: 20180701

REACTIONS (6)
  - Pulmonary embolism [None]
  - Headache [None]
  - Dyspnoea [None]
  - Pain [None]
  - Photosensitivity reaction [None]
  - Stomatitis [None]

NARRATIVE: CASE EVENT DATE: 20180705
